FAERS Safety Report 15941648 (Version 1)
Quarter: 2019Q1

REPORT INFORMATION
  Report Type: Spontaneous
  Country: US (occurrence: US)
  Receive Date: 20190208
  Receipt Date: 20190208
  Transmission Date: 20190417
  Serious: Yes (Other)
  Sender: FDA-Public Use
  Company Number: US-JNJFOC-20190133266

PATIENT
  Sex: Female

DRUGS (22)
  1. TROLAMINE SALICYLATE. [Concomitant]
     Active Substance: TROLAMINE SALICYLATE
  2. BUDESONIDE. [Concomitant]
     Active Substance: BUDESONIDE
     Dates: start: 20170117
  3. BACTRIM DS [Concomitant]
     Active Substance: SULFAMETHOXAZOLE\TRIMETHOPRIM
     Dosage: 800-160 MG
  4. VITAMIN D3 [Concomitant]
     Active Substance: CHOLECALCIFEROL
     Dosage: 1500 UNIT, QD
     Route: 048
  5. MULTIVITAMINS [Concomitant]
     Active Substance: VITAMINS
  6. SYSTANE ULTRA [Concomitant]
     Active Substance: POLYETHYLENE GLYCOL 400\PROPYLENE GLYCOL
     Dosage: 0.4-03.%, 1 DROP INTO EYES 3 TIMES, DAILY
  7. EPIPEN [Concomitant]
     Active Substance: EPINEPHRINE
     Dosage: 0.3MG/0.3ML
  8. HYDRODIURIL [Concomitant]
     Active Substance: HYDROCHLOROTHIAZIDE
  9. KLOR-CON [Concomitant]
     Active Substance: POTASSIUM CHLORIDE
     Dosage: 10 MEQ, UNK
  10. IMBRUVICA [Suspect]
     Active Substance: IBRUTINIB
     Indication: CHRONIC LYMPHOCYTIC LEUKAEMIA
     Route: 048
  11. TYLENOL [Concomitant]
     Active Substance: ACETAMINOPHEN
     Indication: PAIN
     Route: 048
  12. FLONASE [Concomitant]
     Active Substance: FLUTICASONE PROPIONATE
     Dosage: 50 MCG, UNK
  13. LIPITOR [Concomitant]
     Active Substance: ATORVASTATIN CALCIUM
     Route: 048
  14. VALIUM [Concomitant]
     Active Substance: DIAZEPAM
  15. PATANOL [Concomitant]
     Active Substance: OLOPATADINE HYDROCHLORIDE
  16. ROXICODONE [Concomitant]
     Active Substance: OXYCODONE HYDROCHLORIDE
  17. ZOVIRAX [Concomitant]
     Active Substance: ACYCLOVIR
  18. EMLA [Concomitant]
     Active Substance: LIDOCAINE\PRILOCAINE
  19. CLARITIN [Concomitant]
     Active Substance: LORATADINE
  20. MAG-OX [Concomitant]
     Active Substance: MAGNESIUM OXIDE
  21. PRILOSEC [Concomitant]
     Active Substance: OMEPRAZOLE MAGNESIUM
  22. ASCORBIC ACID. [Concomitant]
     Active Substance: ASCORBIC ACID

REACTIONS (4)
  - Hypercholesterolaemia [Unknown]
  - Positron emission tomogram abnormal [Unknown]
  - Pneumocystis jirovecii pneumonia [Unknown]
  - Anaemia [Unknown]
